FAERS Safety Report 8267128-X (Version None)
Quarter: 2012Q2

REPORT INFORMATION
  Report Type: 
  Country: None (occurrence: None)
  Receive Date: 20120409
  Receipt Date: 20120330
  Transmission Date: 20120825
  Serious: Yes (Hospitalization, Other)
  Sender: FDA-Public Use
  Company Number: FR-PFIZER INC-2012086443

PATIENT
  Age: 87 Year
  Sex: Male

DRUGS (10)
  1. ASPIRIN [Concomitant]
  2. RAMIPRIL [Suspect]
     Dosage: UNK
     Route: 048
     Dates: start: 20120210, end: 20120217
  3. LASIX [Concomitant]
  4. PLAVIX [Concomitant]
  5. CORDARONE [Suspect]
     Dosage: 400 MG, 5 DAYS/ 7DAYS
     Route: 048
     Dates: start: 20110331, end: 20120217
  6. RAMIPRIL [Suspect]
     Indication: HYPERTENSION
     Dosage: 2.5 MG, 1X/DAY
     Route: 048
     Dates: start: 20100101, end: 20120210
  7. ZOCOR [Suspect]
     Dosage: 20 MG, 1X/DAY
     Route: 048
     Dates: end: 20120217
  8. ESCITALOPRAM OXALATE [Concomitant]
     Dosage: UNK
     Dates: start: 20110801
  9. CORDARONE [Suspect]
     Indication: TACHYARRHYTHMIA
     Dosage: UNK
     Route: 048
     Dates: end: 20110331
  10. NEXIUM [Concomitant]

REACTIONS (3)
  - FALL [None]
  - CYTOLYTIC HEPATITIS [None]
  - HEAD INJURY [None]
